FAERS Safety Report 16277235 (Version 1)
Quarter: 2019Q2

REPORT INFORMATION
  Report Type: Spontaneous
  Country: US (occurrence: US)
  Receive Date: 20190506
  Receipt Date: 20190506
  Transmission Date: 20190711
  Serious: No
  Sender: FDA-Public Use
  Company Number: US-MYLANLABS-2019M1038027

PATIENT
  Age: 72 Year
  Sex: Male
  Weight: 93 kg

DRUGS (7)
  1. SPIRONOLACTONE TABLETS, USP [Suspect]
     Active Substance: SPIRONOLACTONE
     Indication: BLOOD PRESSURE INCREASED
     Dosage: 25 MILLIGRAM
     Route: 048
     Dates: start: 20190404
  2. MACROGOL [Concomitant]
     Active Substance: POLYETHYLENE GLYCOLS
     Indication: PRODUCT USED FOR UNKNOWN INDICATION
     Dosage: EVERY OTHER DAY
  3. AMLODIPINE [Concomitant]
     Active Substance: AMLODIPINE BESYLATE
     Indication: PRODUCT USED FOR UNKNOWN INDICATION
     Dosage: ONLY WHEN HIS SYSTOLIC BLOOD PRESSURE ABOVE 180.
  4. LINZESS [Concomitant]
     Active Substance: LINACLOTIDE
     Indication: PRODUCT USED FOR UNKNOWN INDICATION
  5. CLOZAPINE. [Concomitant]
     Active Substance: CLOZAPINE
     Indication: HALLUCINATION
     Dosage: 25 MILLIGRAM, HS
     Dates: start: 201806
  6. RYTARY [Concomitant]
     Active Substance: CARBIDOPA\LEVODOPA
     Indication: PARKINSON^S DISEASE
     Dosage: 195 MILLIGRAM, 5XD
  7. LEXAPRO [Concomitant]
     Active Substance: ESCITALOPRAM OXALATE
     Indication: PRODUCT USED FOR UNKNOWN INDICATION
     Dosage: 5 MILLIGRAM, QOD

REACTIONS (1)
  - Constipation [Not Recovered/Not Resolved]

NARRATIVE: CASE EVENT DATE: 20190407
